FAERS Safety Report 5513180-1 (Version None)
Quarter: 2007Q4

REPORT INFORMATION
  Report Type: 
  Country: None (occurrence: None)
  Receive Date: 20071112
  Receipt Date: 20070723
  Transmission Date: 20080405
  Serious: No
  Sender: FDA-Public Use
  Company Number: US-BRISTOL-MYERS SQUIBB COMPANY-13881933

PATIENT
  Age: 52 Year
  Sex: Male

DRUGS (5)
  1. SUSTIVA [Suspect]
     Indication: HIV INFECTION
     Route: 048
     Dates: start: 20020603, end: 20070725
  2. COMBIVIR [Concomitant]
  3. TRICOR [Concomitant]
  4. BACTRIM [Concomitant]
  5. NIASPAN [Concomitant]

REACTIONS (1)
  - GYNAECOMASTIA [None]
